FAERS Safety Report 7589709-9 (Version None)
Quarter: 2011Q3

REPORT INFORMATION
  Report Type: 
  Country: None (occurrence: None)
  Receive Date: 20110705
  Receipt Date: 20110622
  Transmission Date: 20111222
  Serious: Yes (Hospitalization, Congenital Anomaly, Other)
  Sender: FDA-Public Use
  Company Number: DE-TEVA-287673GER

PATIENT
  Age: 0 Year
  Sex: Female
  Weight: 4.32 kg

DRUGS (3)
  1. LEVOTHYROXINE SODIUM [Concomitant]
     Dosage: 150 [MICROG/D ]
     Route: 064
     Dates: start: 20090604, end: 20100305
  2. AMITRIPTYLINE HCL [Suspect]
     Dosage: 100 [MG/D  (BIS 50) ]/ GW 0-5: 100 MG/D. GW 5-6: 75 MG/D, GW 6-39: 50 MG/D
     Route: 064
     Dates: start: 20090604, end: 20100305
  3. FOLIO [Concomitant]
     Dosage: 0.4 [MG/D ]
     Route: 064

REACTIONS (4)
  - HYPERBILIRUBINAEMIA NEONATAL [None]
  - LARGE FOR DATES BABY [None]
  - PYELOCALIECTASIS [None]
  - NEONATAL RESPIRATORY DEPRESSION [None]
